FAERS Safety Report 13652659 (Version 1)
Quarter: 2017Q2

REPORT INFORMATION
  Report Type: Spontaneous
  Country: US (occurrence: US)
  Receive Date: 20170614
  Receipt Date: 20170614
  Transmission Date: 20170830
  Serious: No
  Sender: FDA-Public Use
  Company Number: US-ROCHE-1350432

PATIENT
  Age: 57 Year
  Sex: Male
  Weight: 113.5 kg

DRUGS (1)
  1. XELODA [Suspect]
     Active Substance: CAPECITABINE
     Indication: PRODUCT USED FOR UNKNOWN INDICATION
     Route: 048

REACTIONS (4)
  - Pollakiuria [Unknown]
  - Dyschezia [Unknown]
  - Haematochezia [Unknown]
  - Urine odour abnormal [Unknown]
